FAERS Safety Report 5921479-X (Version None)
Quarter: 2008Q4

REPORT INFORMATION
  Report Type: 
  Country: None (occurrence: None)
  Receive Date: 20081016
  Receipt Date: 20081016
  Transmission Date: 20090506
  Serious: No
  Sender: FDA-Public Use
  Company Number: None

PATIENT
  Sex: Male
  Weight: 52.1637 kg

DRUGS (1)
  1. BOTOX [Suspect]

REACTIONS (4)
  - CONDITION AGGRAVATED [None]
  - NECK PAIN [None]
  - PAIN OF SKIN [None]
  - PARALYSIS [None]
